FAERS Safety Report 14185308 (Version 1)
Quarter: 2017Q4

REPORT INFORMATION
  Report Type: Report from Study
  Country: US (occurrence: US)
  Receive Date: 20171114
  Receipt Date: 20171114
  Transmission Date: 20180321
  Serious: No
  Sender: FDA-Public Use
  Company Number: US-ARALEZ PHARMACEUTICALS R+D INC.-2017-ARA-001261

PATIENT
  Sex: Female

DRUGS (2)
  1. METOPROLOL SUCCINATE. [Suspect]
     Active Substance: METOPROLOL SUCCINATE
     Indication: PRODUCT USED FOR UNKNOWN INDICATION
     Dosage: 12.5 MG, BID
  2. METHOTREXATE. [Suspect]
     Active Substance: METHOTREXATE
     Indication: PRODUCT USED FOR UNKNOWN INDICATION
     Dosage: 25 MG, WEEKLY

REACTIONS (9)
  - Oedema [Unknown]
  - Fall [Unknown]
  - Arthralgia [Unknown]
  - Photosensitivity reaction [Unknown]
  - Insomnia [Unknown]
  - Joint swelling [Unknown]
  - Joint warmth [Unknown]
  - Musculoskeletal stiffness [Unknown]
  - Rash erythematous [Unknown]

NARRATIVE: CASE EVENT DATE: 2017
